FAERS Safety Report 5386568-X (Version None)
Quarter: 2007Q3

REPORT INFORMATION
  Report Type: 
  Country: None (occurrence: None)
  Receive Date: 20070713
  Receipt Date: 20070705
  Transmission Date: 20080115
  Serious: Yes (Other)
  Sender: FDA-Public Use
  Company Number: B0469963A

PATIENT
  Age: 50 Year
  Sex: Male

DRUGS (5)
  1. PAROXETINE HCL [Suspect]
     Indication: ANXIETY
     Dosage: 40MG PER DAY
     Route: 048
     Dates: start: 20070206, end: 20070427
  2. TERCIAN [Suspect]
     Indication: AGGRESSION
     Route: 048
     Dates: start: 20070326, end: 20070426
  3. LYSANXIA [Concomitant]
     Dosage: 3TAB PER DAY
     Route: 048
     Dates: start: 20070101
  4. ZOLPIDEM TARTRATE [Concomitant]
  5. SANMIGRAN [Concomitant]
     Indication: MIGRAINE
     Dosage: 2TAB PER DAY
     Route: 048
     Dates: start: 20060101

REACTIONS (7)
  - AGGRESSION [None]
  - EXTRAPYRAMIDAL DISORDER [None]
  - HYPOAESTHESIA [None]
  - MUSCLE TIGHTNESS [None]
  - MUSCULOSKELETAL STIFFNESS [None]
  - MYOCLONUS [None]
  - SEROTONIN SYNDROME [None]
